FAERS Safety Report 8268895-1 (Version None)
Quarter: 2012Q2

REPORT INFORMATION
  Report Type: 
  Country: None (occurrence: None)
  Receive Date: 20120409
  Receipt Date: 20120403
  Transmission Date: 20120825
  Serious: Yes (Death, Other)
  Sender: FDA-Public Use
  Company Number: US-CUBIST-2012S1000329

PATIENT
  Age: 56 Year
  Sex: Male

DRUGS (7)
  1. CUBICIN [Suspect]
     Indication: STAPHYLOCOCCAL BACTERAEMIA
     Route: 042
  2. CUBICIN [Suspect]
     Route: 042
  3. CUBICIN [Suspect]
     Indication: OSTEOMYELITIS
     Route: 042
  4. CUBICIN [Suspect]
     Route: 042
  5. CUBICIN [Suspect]
     Route: 042
  6. CUBICIN [Suspect]
     Route: 042
  7. ALL OTHER THERAPEUTIC PRODUCTS [Suspect]
     Indication: PRODUCT USED FOR UNKNOWN INDICATION
     Route: 042

REACTIONS (11)
  - THALAMIC INFARCTION [None]
  - SEPSIS [None]
  - CARDIAC VALVE VEGETATION [None]
  - ANAEMIA [None]
  - LEUKOCYTOSIS [None]
  - CEREBRAL INFARCTION [None]
  - MULTI-ORGAN FAILURE [None]
  - MITRAL VALVE INCOMPETENCE [None]
  - SYSTEMIC CANDIDA [None]
  - CARDIAC VALVE ABSCESS [None]
  - LUNG INFILTRATION [None]
